FAERS Safety Report 21159328 (Version 1)
Quarter: 2022Q3

REPORT INFORMATION
  Report Type: Spontaneous
  Country: US (occurrence: US)
  Receive Date: 20220802
  Receipt Date: 20220802
  Transmission Date: 20221027
  Serious: No
  Sender: FDA-Public Use
  Company Number: US-Blueprint Medicines Corporation-300

PATIENT
  Sex: Female

DRUGS (1)
  1. AYVAKIT [Suspect]
     Active Substance: AVAPRITINIB
     Indication: Mastocytic leukaemia
     Route: 048
     Dates: start: 20210629

REACTIONS (6)
  - Visual impairment [Unknown]
  - Feeling abnormal [Unknown]
  - Sinus headache [Unknown]
  - Sinusitis [Unknown]
  - Anxiety [Unknown]
  - Platelet count increased [Unknown]
